FAERS Safety Report 7714979-3 (Version None)
Quarter: 2011Q3

REPORT INFORMATION
  Report Type: 
  Country: None (occurrence: None)
  Receive Date: 20110829
  Receipt Date: 20110524
  Transmission Date: 20111222
  Serious: No
  Sender: FDA-Public Use
  Company Number: US-ASTRAZENECA-2011SE32056

PATIENT
  Sex: Male

DRUGS (2)
  1. TOPICAL NSAID CREAM [Suspect]
     Indication: OSTEOARTHRITIS
     Route: 061
  2. VIMOVO [Suspect]
     Indication: OSTEOARTHRITIS
     Dosage: ONCE OR TWICE A DAY
     Route: 048

REACTIONS (2)
  - MUSCULOSKELETAL PAIN [None]
  - DRUG INEFFECTIVE [None]
